FAERS Safety Report 4548649-X (Version None)
Quarter: 2004Q4

REPORT INFORMATION
  Report Type: 
  Country: None (occurrence: None)
  Receive Date: 20041227
  Receipt Date: 20040913
  Transmission Date: 20050328
  Serious: No
  Sender: FDA-Public Use
  Company Number: 04P-163-0273140-00

PATIENT
  Age: 82 Year
  Sex: Female
  Weight: 58.0604 kg

DRUGS (10)
  1. HUMIRA [Suspect]
     Indication: RHEUMATOID ARTHRITIS
     Dosage: 40 MG, 1 IN 2 WK, SUBCUTANEOUS
     Route: 058
     Dates: start: 20040101, end: 20040501
  2. HUMIRA [Suspect]
     Indication: RHEUMATOID ARTHRITIS
     Dosage: 40 MG, 1 IN 2 WK, SUBCUTANEOUS
     Route: 058
     Dates: start: 20040911
  3. METHOTREXATE SODIUM [Concomitant]
  4. KARVEA HCT [Concomitant]
  5. METOPROLOL TARTRATE [Concomitant]
  6. ROSIGLITAZONE MALEATE [Concomitant]
  7. CELECOXIB [Concomitant]
  8. FOLIC ACID [Concomitant]
  9. GLIPIZIDE [Concomitant]
  10. DARVOCET-N 100 [Concomitant]

REACTIONS (1)
  - INSOMNIA [None]
